FAERS Safety Report 15960690 (Version 5)
Quarter: 2019Q3

REPORT INFORMATION
  Report Type: Spontaneous
  Country: FR (occurrence: FR)
  Receive Date: 20190214
  Receipt Date: 20190812
  Transmission Date: 20191004
  Serious: Yes (Hospitalization, Other)
  Sender: FDA-Public Use
  Company Number: FR-AUROBINDO-AUR-APL-2019-008140

PATIENT

DRUGS (8)
  1. ADOPORT [Suspect]
     Active Substance: TACROLIMUS
     Dosage: 8 MILLIGRAM, UNK
     Route: 048
     Dates: start: 20181221
  2. ADOPORT [Suspect]
     Active Substance: TACROLIMUS
     Dosage: 7 MILLIGRAM
     Route: 048
     Dates: start: 20181221
  3. VALGANCICLOVIR. [Suspect]
     Active Substance: VALGANCICLOVIR
     Indication: CYTOMEGALOVIRUS INFECTION
     Dosage: 450 MILLIGRAM
     Route: 065
     Dates: start: 20181221
  4. ADOPORT [Suspect]
     Active Substance: TACROLIMUS
     Dosage: 4 MG, UNK
     Route: 048
     Dates: start: 20181221
  5. ADOPORT [Suspect]
     Active Substance: TACROLIMUS
     Dosage: 7 MILLIGRAM
     Route: 048
     Dates: start: 20181225
  6. ADOPORT [Suspect]
     Active Substance: TACROLIMUS
     Indication: RENAL TRANSPLANT
     Dosage: 6.5 MILLIGRAM
     Route: 048
     Dates: start: 20181224
  7. ADOPORT [Suspect]
     Active Substance: TACROLIMUS
     Dosage: 6.5 MILLIGRAM
     Route: 048
     Dates: start: 20181221
  8. MYFORTIC [Suspect]
     Active Substance: MYCOPHENOLATE SODIUM
     Indication: TRANSPLANT
     Dosage: 720 MILLIGRAM
     Route: 065
     Dates: start: 20181221, end: 20190404

REACTIONS (8)
  - Abdominal pain [Recovered/Resolved]
  - Leukopenia [Recovered/Resolved]
  - Ascites [Unknown]
  - Acidosis [Recovered/Resolved]
  - Haemoglobinaemia [Recovered/Resolved]
  - Anaemia [Recovered/Resolved]
  - Polyomavirus-associated nephropathy [Recovering/Resolving]
  - Hypertension [Not Recovered/Not Resolved]

NARRATIVE: CASE EVENT DATE: 20181222
